FAERS Safety Report 4321032-8 (Version None)
Quarter: 2004Q1

REPORT INFORMATION
  Report Type: 
  Country: None (occurrence: None)
  Receive Date: 20040315
  Receipt Date: 20030718
  Transmission Date: 20041129
  Serious: Yes (Hospitalization)
  Sender: FDA-Public Use
  Company Number: PHEH2003US06226

PATIENT
  Age: 65 Year
  Sex: Female

DRUGS (1)
  1. TRILEPTAL [Suspect]
     Indication: BIPOLAR DISORDER
     Dosage: 1500 MG/DAY, ORAL
     Route: 048
     Dates: start: 20020223

REACTIONS (2)
  - FALL [None]
  - HYPONATRAEMIA [None]
